FAERS Safety Report 6228242-3 (Version None)
Quarter: 2009Q2

REPORT INFORMATION
  Report Type: 
  Country: None (occurrence: None)
  Receive Date: 20090612
  Receipt Date: 20090601
  Transmission Date: 20091009
  Serious: Yes (Other)
  Sender: FDA-Public Use
  Company Number: US-GENENTECH-284626

PATIENT

DRUGS (7)
  1. RITUXIMAB [Suspect]
     Indication: MANTLE CELL LYMPHOMA
     Dosage: UNK
     Route: 065
  2. BORTEZOMIB [Suspect]
     Indication: MANTLE CELL LYMPHOMA
     Route: 042
  3. CYCLOPHOSPHAMIDE [Suspect]
     Indication: MANTLE CELL LYMPHOMA
     Route: 065
  4. DEXAMETHASONE [Suspect]
     Indication: MANTLE CELL LYMPHOMA
     Route: 065
  5. DOXORUBICIN HCL [Suspect]
     Indication: MANTLE CELL LYMPHOMA
     Route: 065
  6. VINCRISTINE [Suspect]
     Indication: MANTLE CELL LYMPHOMA
     Route: 065
  7. METHOTREXATE [Suspect]
     Indication: MANTLE CELL LYMPHOMA
     Route: 065

REACTIONS (5)
  - ANAEMIA [None]
  - FEBRILE NEUTROPENIA [None]
  - NEUROPATHY PERIPHERAL [None]
  - NEUTROPENIA [None]
  - THROMBOCYTOPENIA [None]
